FAERS Safety Report 7366936-7 (Version None)
Quarter: 2011Q1

REPORT INFORMATION
  Report Type: 
  Country: None (occurrence: None)
  Receive Date: 20110322
  Receipt Date: 20110315
  Transmission Date: 20110831
  Serious: Yes (Hospitalization)
  Sender: FDA-Public Use
  Company Number: B0707411A

PATIENT
  Sex: Male

DRUGS (6)
  1. EFAVIRENZ [Concomitant]
     Dates: start: 20031101
  2. ABACAVIR [Concomitant]
     Dates: start: 20011001
  3. KIVEXA [Suspect]
     Dates: start: 20060329
  4. ABACAVIR [Concomitant]
     Dates: start: 20030101
  5. AMITRIPTYLINE HCL [Concomitant]
  6. ROSUVASTATIN [Concomitant]

REACTIONS (4)
  - BLOOD AMYLASE INCREASED [None]
  - BLOOD SODIUM DECREASED [None]
  - METABOLIC ACIDOSIS [None]
  - PANCREATITIS ACUTE [None]
